FAERS Safety Report 6763294-3 (Version None)
Quarter: 2010Q2

REPORT INFORMATION
  Report Type: 
  Country: None (occurrence: None)
  Receive Date: 20100608
  Receipt Date: 20100608
  Transmission Date: 20101027
  Serious: Yes (Hospitalization)
  Sender: FDA-Public Use
  Company Number: None

PATIENT
  Sex: Male
  Weight: 100 kg

DRUGS (3)
  1. CYTARABINE [Suspect]
     Dosage: 4570 MG
  2. DAUNORUBICIN HCL [Suspect]
     Dosage: 336 MG
  3. ETOPOSIDE [Suspect]
     Dosage: 1125 MG

REACTIONS (14)
  - CATHETER SITE ERYTHEMA [None]
  - CATHETER SITE OEDEMA [None]
  - CATHETER SITE PAIN [None]
  - CELLULITIS [None]
  - GENERAL PHYSICAL HEALTH DETERIORATION [None]
  - LUNG INFILTRATION [None]
  - LYMPHADENOPATHY [None]
  - MULTI-ORGAN FAILURE [None]
  - NEUTROPENIA [None]
  - PERICARDIAL EFFUSION [None]
  - PYREXIA [None]
  - RASH ERYTHEMATOUS [None]
  - RESPIRATORY DISTRESS [None]
  - SEPSIS [None]
